FAERS Safety Report 9442036 (Version 5)
Quarter: 2016Q2

REPORT INFORMATION
  Report Type: Spontaneous
  Country: AT (occurrence: AT)
  Receive Date: 20130806
  Receipt Date: 20160523
  Transmission Date: 20160815
  Serious: Yes (Hospitalization, Other)
  Sender: FDA-Public Use
  Company Number: AT-ALEXION PHARMACEUTICALS INC.-A201301747

PATIENT
  Age: 30 Year
  Sex: Female
  Weight: 44 kg

DRUGS (19)
  1. SOLIRIS [Suspect]
     Active Substance: ECULIZUMAB
     Dosage: 1200 MG, Q2W
     Route: 042
     Dates: start: 20130718
  2. MYFENAX [Concomitant]
     Active Substance: MYCOPHENOLATE MOFETIL
     Indication: SYSTEMIC LUPUS ERYTHEMATOSUS
     Dosage: 1000 MG, UNK
     Route: 048
  3. URBASON                            /00049601/ [Concomitant]
     Active Substance: METHYLPREDNISOLONE
     Indication: SYSTEMIC LUPUS ERYTHEMATOSUS
     Dosage: 20 MG, UNK
     Route: 048
  4. COTRIBENE [Concomitant]
     Indication: ANTIFUNGAL PROPHYLAXIS
     Dosage: 800 MG/160 MG,UNK
     Route: 048
  5. LOVENOX [Concomitant]
     Active Substance: ENOXAPARIN SODIUM
     Indication: PROPHYLAXIS
     Dosage: 40 MG ON DAYS W/O DIALYSIS
     Route: 058
  6. AMLODIPINE [Concomitant]
     Active Substance: AMLODIPINE BESYLATE
     Indication: PRODUCT USED FOR UNKNOWN INDICATION
     Dosage: 10 MG, UNK
     Route: 048
  7. PANTOLOC                           /01263204/ [Concomitant]
     Active Substance: PANTOPRAZOLE SODIUM
     Indication: PROPHYLAXIS AGAINST GASTROINTESTINAL ULCER
     Dosage: 40 MG, UNK
     Route: 048
  8. EUTHYROX [Concomitant]
     Active Substance: LEVOTHYROXINE SODIUM
     Indication: HYPERTHYROIDISM
     Dosage: UNK
     Route: 048
  9. SOLIRIS [Suspect]
     Active Substance: ECULIZUMAB
     Indication: HAEMOLYTIC URAEMIC SYNDROME
     Dosage: 900 MG, QW
     Route: 042
     Dates: start: 20130621, end: 20130712
  10. METHYLPREDNISOLONE. [Concomitant]
     Active Substance: METHYLPREDNISOLONE
     Indication: PRODUCT USED FOR UNKNOWN INDICATION
     Dosage: 60 MG, QD
     Route: 065
  11. ERYPO                              /00928301/ [Concomitant]
     Indication: HAEMODIALYSIS
     Dosage: 6000 IU DURING DIALYSIS
     Route: 065
  12. ACULAR [Concomitant]
     Active Substance: KETOROLAC TROMETHAMINE
     Indication: RETINOPATHY
     Dosage: 5 MG/ML, UNK
     Route: 031
  13. METHYLPREDNISOLONE. [Concomitant]
     Active Substance: METHYLPREDNISOLONE
     Dosage: 1.5 MG/KG, UNK
     Route: 048
  14. ITERIUM [Concomitant]
     Active Substance: RILMENIDINE
     Indication: RENAL FAILURE
     Dosage: 1 MG, UNK
     Route: 048
  15. TRITTICO [Concomitant]
     Active Substance: TRAZODONE HYDROCHLORIDE
     Indication: PRODUCT USED FOR UNKNOWN INDICATION
     Dosage: UNK
     Route: 048
  16. FERRLECIT                          /00345601/ [Concomitant]
     Indication: HAEMODIALYSIS
     Dosage: UNK
     Route: 065
  17. QUENSYL [Concomitant]
     Active Substance: HYDROXYCHLOROQUINE
     Indication: SYSTEMIC LUPUS ERYTHEMATOSUS
     Dosage: 200 MG. UNK
     Route: 048
  18. METHYLPREDNISOLONE. [Concomitant]
     Active Substance: METHYLPREDNISOLONE
     Dosage: 250 MG, FOR 3 DAYS
     Route: 065
  19. MAXI-KALZ VIT D3 [Concomitant]
     Active Substance: CALCIUM CARBONATE\CHOLECALCIFEROL
     Indication: OSTEOPOROSIS
     Dosage: UNK
     Route: 048

REACTIONS (6)
  - Thrombocytopenia [Unknown]
  - Haemolysis [Unknown]
  - Blood lactate dehydrogenase increased [Unknown]
  - Drug ineffective [Unknown]
  - Red blood cell schistocytes present [Unknown]
  - Haptoglobin abnormal [Unknown]

NARRATIVE: CASE EVENT DATE: 201307
